FAERS Safety Report 23360493 (Version 3)
Quarter: 2024Q1

REPORT INFORMATION
  Report Type: Report from Study
  Country: US (occurrence: US)
  Receive Date: 20240103
  Receipt Date: 20240123
  Transmission Date: 20240409
  Serious: Yes (Hospitalization, Other)
  Sender: FDA-Public Use
  Company Number: US-UCBSA-2023028267

PATIENT
  Sex: Male
  Weight: 38.2 kg

DRUGS (13)
  1. FINTEPLA [Suspect]
     Active Substance: FENFLURAMINE
     Indication: Lennox-Gastaut syndrome
     Dosage: 2 MILLILITER, 2X/DAY (BID)
     Route: 048
     Dates: start: 20230418
  2. FINTEPLA [Suspect]
     Active Substance: FENFLURAMINE
     Dosage: 2 MILLILITER, 2X/DAY (BID)
     Route: 048
  3. FINTEPLA [Suspect]
     Active Substance: FENFLURAMINE
     Dosage: 2.5 MILLILITER, 2X/DAY (BID)
     Route: 048
     Dates: start: 20230725
  4. FINTEPLA [Suspect]
     Active Substance: FENFLURAMINE
     Dosage: 3 MILLILITER, 2X/DAY (BID)
     Route: 048
  5. FINTEPLA [Suspect]
     Active Substance: FENFLURAMINE
     Dosage: 3 MILLILITER, 2X/DAY (BID)
     Route: 048
  6. FINTEPLA [Suspect]
     Active Substance: FENFLURAMINE
     Dosage: 13.16 MILLIGRAM/DAY
     Route: 048
  7. FINTEPLA [Suspect]
     Active Substance: FENFLURAMINE
     Dosage: 1.8 MILLIGRAM, 2X/DAY (BID) (0.05 MG/KG/DAY FOR 36 KG)
     Route: 048
     Dates: start: 20230419
  8. FINTEPLA [Suspect]
     Active Substance: FENFLURAMINE
     Dosage: 6.6 MILLIGRAM, 2X/DAY (BID)
     Route: 048
     Dates: start: 20231002
  9. LEVETIRACETAM [Suspect]
     Active Substance: LEVETIRACETAM
     Indication: Epilepsy
     Dosage: 1000 MILLIGRAM, 3X/DAY (TID)
     Route: 048
  10. LACOSAMIDE [Concomitant]
     Active Substance: LACOSAMIDE
     Indication: Epilepsy
     Dosage: 200 MILLIGRAM, 2X/DAY (BID)
     Route: 048
  11. LAMOTRIGINE [Concomitant]
     Active Substance: LAMOTRIGINE
     Indication: Epilepsy
     Dosage: 150 MG AM/200 MG PM
     Route: 048
  12. CLORAZEPATE DIPOTASSIUM [Concomitant]
     Active Substance: CLORAZEPATE DIPOTASSIUM
     Indication: Epilepsy
     Dosage: 7.5 MG AM/7.5 MG PM/11.25 MG QHS
     Route: 048
  13. CLOBAZAM [Concomitant]
     Active Substance: CLOBAZAM
     Indication: Epilepsy
     Dosage: 15 MILLIGRAM, 2X/DAY (BID)
     Route: 048
     Dates: start: 202108

REACTIONS (17)
  - Cerebral haemorrhage [Recovering/Resolving]
  - Fall [Recovering/Resolving]
  - Concussion [Recovering/Resolving]
  - Lip injury [Recovering/Resolving]
  - Tricuspid valve incompetence [Unknown]
  - Mitral valve incompetence [Unknown]
  - Lip swelling [Recovering/Resolving]
  - Atonic seizures [Recovering/Resolving]
  - Pericardial effusion [Not Recovered/Not Resolved]
  - Oral pain [Not Recovered/Not Resolved]
  - Ear infection [Not Recovered/Not Resolved]
  - Inappropriate schedule of product administration [Unknown]
  - Loose tooth [Not Recovered/Not Resolved]
  - Dermatitis diaper [Not Recovered/Not Resolved]
  - Constipation [Not Recovered/Not Resolved]
  - Alanine aminotransferase decreased [Unknown]
  - Off label use [Unknown]

NARRATIVE: CASE EVENT DATE: 20230101
